FAERS Safety Report 8653298 (Version 2)
Quarter: 2013Q1

REPORT INFORMATION
  Report Type: Spontaneous
  Country: US (occurrence: US)
  Receive Date: 20120706
  Receipt Date: 20130211
  Transmission Date: 20140127
  Serious: Yes (Hospitalization)
  Sender: FDA-Public Use
  Company Number: US-ASTRAZENECA-2012SE44593

PATIENT
  Age: 53 Year
  Sex: Male
  Weight: 201 kg

DRUGS (4)
  1. NEXIUM [Suspect]
     Route: 048
  2. COUMADIN [Suspect]
     Indication: ATRIAL FIBRILLATION
     Route: 065
  3. PREDNISONE [Concomitant]
     Dosage: DOSE TAPERED
  4. HUMULIN [Concomitant]
     Indication: DIABETES MELLITUS
     Dosage: DOSE - 70/30

REACTIONS (6)
  - Cardiac failure congestive [Recovering/Resolving]
  - Blood creatinine increased [Unknown]
  - Venous insufficiency [Unknown]
  - Non-cardiac chest pain [Unknown]
  - Anticoagulation drug level below therapeutic [Unknown]
  - Bronchitis [Unknown]
